FAERS Safety Report 12185582 (Version 3)
Quarter: 2016Q2

REPORT INFORMATION
  Report Type: Other
  Country: GB (occurrence: GB)
  Receive Date: 20160316
  Receipt Date: 20160407
  Transmission Date: 20160815
  Serious: Yes (Other)
  Sender: FDA-Public Use
  Company Number: GB-APOTEX-2016AP007016

PATIENT
  Age: 58 Year
  Sex: Female

DRUGS (105)
  1. LATANOPROST. [Suspect]
     Active Substance: LATANOPROST
     Dosage: UNK
     Route: 065
     Dates: start: 20051206
  2. CLIMESSE [Suspect]
     Active Substance: ESTRADIOL VALERATE\NORETHINDRONE
     Indication: HORMONE REPLACEMENT THERAPY
     Dosage: UNK, QD
     Route: 048
     Dates: start: 20000921
  3. CLIMESSE [Suspect]
     Active Substance: ESTRADIOL VALERATE\NORETHINDRONE
     Dosage: UNK, QD
     Route: 048
     Dates: start: 20010319
  4. CLIMESSE [Suspect]
     Active Substance: ESTRADIOL VALERATE\NORETHINDRONE
     Dosage: UNK, QD
     Route: 048
     Dates: start: 20040210
  5. CLIMESSE [Suspect]
     Active Substance: ESTRADIOL VALERATE\NORETHINDRONE
     Dosage: UNK, QD
     Route: 048
     Dates: start: 20100218
  6. CLIMESSE [Suspect]
     Active Substance: ESTRADIOL VALERATE\NORETHINDRONE
     Dosage: UNK, QD
     Route: 048
     Dates: start: 20110119
  7. CLIMESSE [Suspect]
     Active Substance: ESTRADIOL VALERATE\NORETHINDRONE
     Dosage: UNK, QD
     Route: 048
     Dates: start: 20121210
  8. TRAVOPROST [Suspect]
     Active Substance: TRAVOPROST
     Indication: PRODUCT USED FOR UNKNOWN INDICATION
     Dosage: 40 MCG/ML
     Route: 065
     Dates: start: 20100802, end: 20101119
  9. XALACOM [Suspect]
     Active Substance: LATANOPROST\TIMOLOL MALEATE
     Dosage: UNK
     Route: 065
     Dates: start: 20110320
  10. XALACOM [Suspect]
     Active Substance: LATANOPROST\TIMOLOL MALEATE
     Dosage: UNK
     Route: 065
     Dates: start: 20110512
  11. XALACOM [Suspect]
     Active Substance: LATANOPROST\TIMOLOL MALEATE
     Dosage: UNK
     Route: 065
     Dates: start: 20120103
  12. XALACOM [Suspect]
     Active Substance: LATANOPROST\TIMOLOL MALEATE
     Dosage: UNK
     Route: 065
     Dates: start: 20120525
  13. XALACOM [Suspect]
     Active Substance: LATANOPROST\TIMOLOL MALEATE
     Dosage: UNK
     Route: 065
     Dates: start: 20141020
  14. XALACOM [Suspect]
     Active Substance: LATANOPROST\TIMOLOL MALEATE
     Dosage: UNK
     Route: 065
     Dates: start: 20150114
  15. AMOXYCILLIN                        /00249601/ [Concomitant]
     Active Substance: AMOXICILLIN
     Dosage: UNK
     Dates: start: 20050107
  16. LATANOPROST. [Suspect]
     Active Substance: LATANOPROST
     Dosage: UNK
     Route: 065
     Dates: start: 20060901
  17. LATANOPROST. [Suspect]
     Active Substance: LATANOPROST
     Dosage: UNK
     Route: 065
     Dates: start: 20060306
  18. LATANOPROST. [Suspect]
     Active Substance: LATANOPROST
     Dosage: UNK
     Route: 065
     Dates: start: 20070110
  19. LATANOPROST. [Suspect]
     Active Substance: LATANOPROST
     Dosage: UNK
     Route: 065
     Dates: start: 20070220
  20. LATANOPROST. [Suspect]
     Active Substance: LATANOPROST
     Dosage: UNK
     Route: 065
     Dates: start: 20071122
  21. XALACOM [Suspect]
     Active Substance: LATANOPROST\TIMOLOL MALEATE
     Indication: PRODUCT USED FOR UNKNOWN INDICATION
     Dosage: UNK, UNKNOWN
     Route: 065
     Dates: start: 20050412, end: 20050607
  22. XALACOM [Suspect]
     Active Substance: LATANOPROST\TIMOLOL MALEATE
     Dosage: UNK
     Route: 065
     Dates: start: 20120131
  23. XALACOM [Suspect]
     Active Substance: LATANOPROST\TIMOLOL MALEATE
     Dosage: UNK
     Route: 065
     Dates: start: 20140425
  24. XALACOM [Suspect]
     Active Substance: LATANOPROST\TIMOLOL MALEATE
     Dosage: UNK
     Route: 065
     Dates: start: 20140714
  25. XALACOM [Suspect]
     Active Substance: LATANOPROST\TIMOLOL MALEATE
     Dosage: UNK
     Route: 065
     Dates: start: 20150305
  26. XALACOM [Suspect]
     Active Substance: LATANOPROST\TIMOLOL MALEATE
     Dosage: UNK
     Route: 065
     Dates: start: 20150917
  27. LATANOPROST. [Suspect]
     Active Substance: LATANOPROST
     Dosage: UNK
     Route: 065
     Dates: start: 20050929
  28. LATANOPROST. [Suspect]
     Active Substance: LATANOPROST
     Dosage: UNK
     Route: 065
     Dates: start: 20061103
  29. CLIMESSE [Suspect]
     Active Substance: ESTRADIOL VALERATE\NORETHINDRONE
     Dosage: UNK, QD
     Route: 048
     Dates: start: 20010829
  30. CLIMESSE [Suspect]
     Active Substance: ESTRADIOL VALERATE\NORETHINDRONE
     Dosage: UNK, QD
     Route: 048
     Dates: start: 20100811
  31. CLIMESSE [Suspect]
     Active Substance: ESTRADIOL VALERATE\NORETHINDRONE
     Dosage: UNK, QD
     Route: 048
     Dates: start: 20130509
  32. CLIMESSE [Suspect]
     Active Substance: ESTRADIOL VALERATE\NORETHINDRONE
     Dosage: UNK, QD
     Route: 048
     Dates: start: 20140210
  33. CLIMESSE [Suspect]
     Active Substance: ESTRADIOL VALERATE\NORETHINDRONE
     Dosage: UNK, QD
     Route: 048
     Dates: start: 20140325
  34. XALACOM [Suspect]
     Active Substance: LATANOPROST\TIMOLOL MALEATE
     Dosage: UNK
     Route: 065
     Dates: start: 20120612
  35. XALACOM [Suspect]
     Active Substance: LATANOPROST\TIMOLOL MALEATE
     Dosage: UNK
     Route: 065
     Dates: start: 20150603
  36. XALACOM [Suspect]
     Active Substance: LATANOPROST\TIMOLOL MALEATE
     Dosage: UNK
     Route: 065
     Dates: start: 20150714
  37. LATANOPROST. [Suspect]
     Active Substance: LATANOPROST
     Indication: PRODUCT USED FOR UNKNOWN INDICATION
     Dosage: UNK UNK, UNKNOWN
     Route: 065
     Dates: start: 20050414
  38. LATANOPROST. [Suspect]
     Active Substance: LATANOPROST
     Dosage: UNK
     Route: 065
     Dates: start: 20050725
  39. LATANOPROST. [Suspect]
     Active Substance: LATANOPROST
     Dosage: UNK
     Route: 065
     Dates: start: 20060725
  40. LATANOPROST. [Suspect]
     Active Substance: LATANOPROST
     Dosage: UNK
     Route: 065
     Dates: start: 20070418
  41. LATANOPROST. [Suspect]
     Active Substance: LATANOPROST
     Dosage: UNK
     Route: 065
     Dates: start: 20070901
  42. CLIMESSE [Suspect]
     Active Substance: ESTRADIOL VALERATE\NORETHINDRONE
     Dosage: UNK, QD
     Route: 048
     Dates: start: 20070509
  43. CLIMESSE [Suspect]
     Active Substance: ESTRADIOL VALERATE\NORETHINDRONE
     Dosage: UNK, QD
     Route: 048
     Dates: start: 20071018
  44. CLIMESSE [Suspect]
     Active Substance: ESTRADIOL VALERATE\NORETHINDRONE
     Dosage: UNK, QD
     Route: 048
     Dates: start: 20131210
  45. CLIMESSE [Suspect]
     Active Substance: ESTRADIOL VALERATE\NORETHINDRONE
     Dosage: UNK, QD
     Route: 048
     Dates: start: 20140826
  46. XALACOM [Suspect]
     Active Substance: LATANOPROST\TIMOLOL MALEATE
     Dosage: UNK
     Route: 065
     Dates: start: 20110120
  47. XALACOM [Suspect]
     Active Substance: LATANOPROST\TIMOLOL MALEATE
     Dosage: UNK
     Route: 065
     Dates: start: 20110616
  48. XALACOM [Suspect]
     Active Substance: LATANOPROST\TIMOLOL MALEATE
     Dosage: UNK
     Route: 065
     Dates: start: 20110715
  49. XALACOM [Suspect]
     Active Substance: LATANOPROST\TIMOLOL MALEATE
     Dosage: UNK
     Route: 065
     Dates: start: 20120423
  50. XALACOM [Suspect]
     Active Substance: LATANOPROST\TIMOLOL MALEATE
     Dosage: UNK
     Route: 065
     Dates: start: 20121112
  51. LATANOPROST. [Suspect]
     Active Substance: LATANOPROST
     Dosage: UNK
     Route: 065
     Dates: start: 20060119
  52. CLIMESSE [Suspect]
     Active Substance: ESTRADIOL VALERATE\NORETHINDRONE
     Dosage: UNK, QD
     Route: 048
     Dates: start: 20061128
  53. CLIMESSE [Suspect]
     Active Substance: ESTRADIOL VALERATE\NORETHINDRONE
     Dosage: UNK, QD
     Route: 048
     Dates: start: 20080421
  54. CLIMESSE [Suspect]
     Active Substance: ESTRADIOL VALERATE\NORETHINDRONE
     Dosage: UNK, QD
     Route: 048
     Dates: start: 20110707
  55. HYDROCORTISONE. [Suspect]
     Active Substance: HYDROCORTISONE
     Dosage: UNK
     Route: 065
     Dates: start: 20110107
  56. XALACOM [Suspect]
     Active Substance: LATANOPROST\TIMOLOL MALEATE
     Dosage: UNK
     Route: 065
     Dates: start: 20120823
  57. XALACOM [Suspect]
     Active Substance: LATANOPROST\TIMOLOL MALEATE
     Dosage: UNK
     Route: 065
     Dates: start: 20121210
  58. XALACOM [Suspect]
     Active Substance: LATANOPROST\TIMOLOL MALEATE
     Dosage: UNK
     Route: 065
     Dates: start: 20140812
  59. LATANOPROST. [Suspect]
     Active Substance: LATANOPROST
     Dosage: UNK
     Route: 065
     Dates: start: 20060515
  60. LATANOPROST. [Suspect]
     Active Substance: LATANOPROST
     Dosage: UNK
     Route: 065
     Dates: start: 20070604
  61. LATANOPROST. [Suspect]
     Active Substance: LATANOPROST
     Dosage: UNK
  62. CLIMESSE [Suspect]
     Active Substance: ESTRADIOL VALERATE\NORETHINDRONE
     Dosage: UNK, QD
     Route: 048
     Dates: start: 20060105
  63. CLIMESSE [Suspect]
     Active Substance: ESTRADIOL VALERATE\NORETHINDRONE
     Dosage: UNK, QD
     Route: 048
     Dates: start: 20080421
  64. HYDROCORTISONE. [Suspect]
     Active Substance: HYDROCORTISONE
     Indication: PRODUCT USED FOR UNKNOWN INDICATION
     Dosage: 15 G, TID
     Route: 065
     Dates: start: 20020514
  65. XALACOM [Suspect]
     Active Substance: LATANOPROST\TIMOLOL MALEATE
     Dosage: UNK
     Route: 065
     Dates: start: 20110426
  66. XALACOM [Suspect]
     Active Substance: LATANOPROST\TIMOLOL MALEATE
     Dosage: UNK
     Route: 065
     Dates: start: 20120224
  67. XALACOM [Suspect]
     Active Substance: LATANOPROST\TIMOLOL MALEATE
     Dosage: UNK
     Route: 065
     Dates: start: 20120327
  68. XALACOM [Suspect]
     Active Substance: LATANOPROST\TIMOLOL MALEATE
     Dosage: UNK
     Route: 065
     Dates: start: 20121015
  69. XALACOM [Suspect]
     Active Substance: LATANOPROST\TIMOLOL MALEATE
     Dosage: UNK
     Route: 065
     Dates: start: 20130111
  70. XALACOM [Suspect]
     Active Substance: LATANOPROST\TIMOLOL MALEATE
     Dosage: UNK
     Route: 065
     Dates: start: 20130206
  71. XALACOM [Suspect]
     Active Substance: LATANOPROST\TIMOLOL MALEATE
     Dosage: UNK
     Route: 065
     Dates: start: 20140522
  72. XALACOM [Suspect]
     Active Substance: LATANOPROST\TIMOLOL MALEATE
     Dosage: UNK
     Route: 065
     Dates: start: 20140617
  73. XALACOM [Suspect]
     Active Substance: LATANOPROST\TIMOLOL MALEATE
     Dosage: UNK
     Route: 065
     Dates: start: 20141111, end: 20151116
  74. XALACOM [Suspect]
     Active Substance: LATANOPROST\TIMOLOL MALEATE
     Dosage: UNK
     Route: 065
     Dates: start: 20141216
  75. XALACOM [Suspect]
     Active Substance: LATANOPROST\TIMOLOL MALEATE
     Dosage: UNK
     Route: 065
     Dates: start: 20141230
  76. XALACOM [Suspect]
     Active Substance: LATANOPROST\TIMOLOL MALEATE
     Dosage: UNK
     Route: 065
     Dates: start: 20151006
  77. LATANOPROST. [Suspect]
     Active Substance: LATANOPROST
     Dosage: UNK
     Route: 065
     Dates: start: 20050623
  78. LATANOPROST. [Suspect]
     Active Substance: LATANOPROST
     Dosage: UNK
     Route: 065
     Dates: start: 20060120
  79. LATANOPROST. [Suspect]
     Active Substance: LATANOPROST
     Dosage: UNK
     Route: 065
     Dates: start: 20080108
  80. CLIMESSE [Suspect]
     Active Substance: ESTRADIOL VALERATE\NORETHINDRONE
     Dosage: UNK, QD
     Route: 048
     Dates: start: 20071018
  81. CLIMESSE [Suspect]
     Active Substance: ESTRADIOL VALERATE\NORETHINDRONE
     Dosage: UNK, QD
     Route: 048
     Dates: start: 20150401, end: 20150401
  82. INFLUENZA VIRUS [Suspect]
     Active Substance: INFLUENZA VIRUS VACCINE
     Indication: IMMUNISATION
     Dosage: 0.5 ML, UNK
     Route: 065
     Dates: start: 20131028, end: 20131028
  83. XALACOM [Suspect]
     Active Substance: LATANOPROST\TIMOLOL MALEATE
     Dosage: UNK
     Route: 065
     Dates: start: 20050607
  84. XALACOM [Suspect]
     Active Substance: LATANOPROST\TIMOLOL MALEATE
     Dosage: UNK
     Route: 065
     Dates: start: 20120716
  85. XALACOM [Suspect]
     Active Substance: LATANOPROST\TIMOLOL MALEATE
     Dosage: UNK
     Route: 065
     Dates: start: 20120917
  86. XALACOM [Suspect]
     Active Substance: LATANOPROST\TIMOLOL MALEATE
     Dosage: UNK
     Route: 065
     Dates: start: 20140909
  87. XALACOM [Suspect]
     Active Substance: LATANOPROST\TIMOLOL MALEATE
     Dosage: UNK
     Route: 065
     Dates: start: 20150331
  88. XALACOM [Suspect]
     Active Substance: LATANOPROST\TIMOLOL MALEATE
     Dosage: UNK
     Route: 065
     Dates: end: 20151229
  89. AMOXYCILLIN                        /00249601/ [Concomitant]
     Active Substance: AMOXICILLIN
     Indication: PRODUCT USED FOR UNKNOWN INDICATION
     Dosage: UNK, TID
     Route: 065
     Dates: start: 19900305
  90. LATANOPROST. [Suspect]
     Active Substance: LATANOPROST
     Dosage: UNK
     Route: 065
     Dates: start: 20070813
  91. CLIMESSE [Suspect]
     Active Substance: ESTRADIOL VALERATE\NORETHINDRONE
     Dosage: UNK, QD
     Route: 048
     Dates: start: 20030210
  92. CLIMESSE [Suspect]
     Active Substance: ESTRADIOL VALERATE\NORETHINDRONE
     Dosage: UNK, QD
     Route: 048
     Dates: start: 20050706
  93. CLIMESSE [Suspect]
     Active Substance: ESTRADIOL VALERATE\NORETHINDRONE
     Dosage: UNK, QD
     Route: 048
     Dates: start: 20050107
  94. CLIMESSE [Suspect]
     Active Substance: ESTRADIOL VALERATE\NORETHINDRONE
     Dosage: UNK, QD
     Route: 048
     Dates: start: 20060105
  95. CLIMESSE [Suspect]
     Active Substance: ESTRADIOL VALERATE\NORETHINDRONE
     Dosage: UNK, QD
     Route: 048
     Dates: start: 20080421
  96. CLIMESSE [Suspect]
     Active Substance: ESTRADIOL VALERATE\NORETHINDRONE
     Dosage: UNK, QD
     Route: 048
     Dates: start: 20090904
  97. CLIMESSE [Suspect]
     Active Substance: ESTRADIOL VALERATE\NORETHINDRONE
     Dosage: UNK, QD
     Route: 048
     Dates: start: 20120105
  98. CLIMESSE [Suspect]
     Active Substance: ESTRADIOL VALERATE\NORETHINDRONE
     Dosage: UNK, QD
     Route: 048
     Dates: start: 20120612
  99. KLIOFEM [Suspect]
     Active Substance: ESTRADIOL\NORETHINDRONE ACETATE
     Indication: PRODUCT USED FOR UNKNOWN INDICATION
     Dosage: UNK, QD
     Route: 065
     Dates: start: 20010207
  100. XALACOM [Suspect]
     Active Substance: LATANOPROST\TIMOLOL MALEATE
     Dosage: UNK
     Route: 065
     Dates: start: 20101224, end: 20141020
  101. XALACOM [Suspect]
     Active Substance: LATANOPROST\TIMOLOL MALEATE
     Dosage: UNK
     Route: 065
     Dates: start: 20110228
  102. XALACOM [Suspect]
     Active Substance: LATANOPROST\TIMOLOL MALEATE
     Dosage: UNK
     Route: 065
     Dates: start: 20141111
  103. XALACOM [Suspect]
     Active Substance: LATANOPROST\TIMOLOL MALEATE
     Dosage: UNK
     Route: 065
     Dates: start: 20150501
  104. XALACOM [Suspect]
     Active Substance: LATANOPROST\TIMOLOL MALEATE
     Dosage: UNK
     Route: 065
     Dates: start: 20150819
  105. XALACOM [Suspect]
     Active Substance: LATANOPROST\TIMOLOL MALEATE
     Dosage: UNK
     Route: 065
     Dates: start: 20151116

REACTIONS (4)
  - Multiple sclerosis [Not Recovered/Not Resolved]
  - Finger deformity [Unknown]
  - Glaucoma [Not Recovered/Not Resolved]
  - Normal tension glaucoma [Not Recovered/Not Resolved]

NARRATIVE: CASE EVENT DATE: 20050719
